FAERS Safety Report 8756397 (Version 4)
Quarter: 2012Q4

REPORT INFORMATION
  Report Type: 
  Country: US (occurrence: US)
  Receive Date: 20120828
  Receipt Date: 20121017
  Transmission Date: 20130627
  Serious: Yes (Hospitalization, Other)
  Sender: FDA-Public Use
  Company Number: US-MERCK-1208USA010066

PATIENT
  Sex: Female

DRUGS (5)
  1. REBETOL [Suspect]
     Indication: HEPATITIS C
     Dosage: UNK
     Route: 048
     Dates: start: 20120810
  2. PEGINTRON [Suspect]
     Indication: HEPATITIS C
     Dosage: UNK
     Route: 058
     Dates: start: 20120810
  3. VICTRELIS [Suspect]
     Indication: HEPATITIS C
     Dosage: UNK
     Dates: start: 20120823
  4. XANAX [Concomitant]
     Indication: DEPRESSION
  5. NEXIUM [Concomitant]
     Dosage: UNK, bid

REACTIONS (14)
  - Haemorrhoid operation [Unknown]
  - Anal fissure excision [Unknown]
  - Lymphadenectomy [Unknown]
  - Oropharyngeal pain [Unknown]
  - Headache [Unknown]
  - Injection site erythema [Unknown]
  - Malaise [Unknown]
  - Diarrhoea [Unknown]
  - Urinary tract infection [Unknown]
  - Back pain [Unknown]
  - Abdominal pain [Unknown]
  - Insomnia [Unknown]
  - Fatigue [Unknown]
  - Pruritus [Unknown]
